FAERS Safety Report 15175595 (Version 5)
Quarter: 2018Q3

REPORT INFORMATION
  Report Type: Spontaneous
  Country: CA (occurrence: CA)
  Receive Date: 20180720
  Receipt Date: 20180907
  Transmission Date: 20181010
  Serious: Yes (Other)
  Sender: FDA-Public Use
  Company Number: CA-PFIZER INC-2018287022

PATIENT
  Age: 34 Year
  Sex: Female

DRUGS (3)
  1. BACTERIOSTATIC SODIUM CHLORIDE [Suspect]
     Active Substance: SODIUM CHLORIDE
     Indication: FLUSHING
  2. BACTERIOSTATIC SODIUM CHLORIDE [Suspect]
     Active Substance: SODIUM CHLORIDE
     Indication: MEDICATION DILUTION
     Dosage: 1 ML, SINGLE
     Route: 058
     Dates: start: 20180626, end: 20180626
  3. BACTERIOSTATIC SODIUM CHLORIDE [Suspect]
     Active Substance: SODIUM CHLORIDE
     Indication: SCLEROTHERAPY

REACTIONS (5)
  - Injection site swelling [Unknown]
  - Paraesthesia [Recovered/Resolved]
  - Injection site pain [Unknown]
  - Skin ulcer [Not Recovered/Not Resolved]
  - Burning sensation [Recovered/Resolved with Sequelae]

NARRATIVE: CASE EVENT DATE: 20180626
